FAERS Safety Report 9844313 (Version 2)
Quarter: 2014Q1

REPORT INFORMATION
  Report Type: Spontaneous
  Country: DE (occurrence: None)
  Receive Date: 20140102
  Receipt Date: 20140122
  Transmission Date: 20141002
  Serious: Yes (Other)
  Sender: FDA-Public Use
  Company Number: WIL-024-13-DE

PATIENT
  Age: 31 Year
  Sex: Female

DRUGS (2)
  1. WILATE [Suspect]
     Indication: VON WILLEBRAND^S DISEASE
     Route: 042
     Dates: start: 20130418, end: 20130507
  2. VITAMINS [Concomitant]

REACTIONS (7)
  - Maternal exposure during pregnancy [None]
  - Foetal death [None]
  - Uterine haemorrhage [None]
  - Abortion spontaneous [None]
  - Thrombocytopenia [None]
  - Erythema [None]
  - Placental disorder [None]
